FAERS Safety Report 4301336-5 (Version None)
Quarter: 2004Q1

REPORT INFORMATION
  Report Type: 
  Country: None (occurrence: None)
  Receive Date: 20040219
  Receipt Date: 20040216
  Transmission Date: 20041129
  Serious: Yes (Hospitalization)
  Sender: FDA-Public Use
  Company Number: TCI2003A04175

PATIENT
  Age: 58 Year
  Sex: Male

DRUGS (5)
  1. LANSOPRAZOLE [Suspect]
     Indication: GASTRITIS HAEMORRHAGIC
     Dosage: 30 MG, (30 MG, 1 IN 1 D), PER ORAL
     Route: 048
     Dates: start: 20031028, end: 20031029
  2. ADALAT [Suspect]
     Indication: HYPERTENSION
     Dosage: 40 MG (40 MG, 1 D), PER ORAL
     Route: 048
     Dates: start: 19880401, end: 20031029
  3. ZITHROMAX [Suspect]
     Indication: PNEUMONIA
     Dosage: 500 MG, (500 MG, 1 D), PER ORAL
     Route: 048
     Dates: start: 20031028, end: 20031029
  4. ZITHROMAX [Suspect]
     Indication: PYREXIA
     Dosage: 500 MG, (500 MG, 1 D), PER ORAL
     Route: 048
     Dates: start: 20031028, end: 20031029
  5. JUVELA (TOCOPHEROL) (TABLETS) [Suspect]
     Dosage: 200 MG (200 MG, 1 D), PER ORAL
     Route: 048
     Dates: start: 19880401, end: 20031029

REACTIONS (7)
  - ALCOHOL USE [None]
  - BLOOD PRESSURE DECREASED [None]
  - DYSARTHRIA [None]
  - GASTRITIS HAEMORRHAGIC [None]
  - LYMPHOCYTE STIMULATION TEST POSITIVE [None]
  - PNEUMONIA [None]
  - RHABDOMYOLYSIS [None]
